FAERS Safety Report 20081332 (Version 1)
Quarter: 2021Q4

REPORT INFORMATION
  Report Type: Spontaneous
  Country: US (occurrence: None)
  Receive Date: 20211116
  Receipt Date: 20211116
  Transmission Date: 20220303
  Serious: No
  Sender: FDA-Public Use
  Company Number: None

PATIENT

DRUGS (2)
  1. STERILE WATER FOR INJECTION [Suspect]
     Active Substance: WATER
  2. STERILE WATER FOR IRRIGATION [Suspect]
     Active Substance: WATER

REACTIONS (2)
  - Product preparation error [None]
  - Product administration error [None]
